FAERS Safety Report 8580198-4 (Version None)
Quarter: 2012Q3

REPORT INFORMATION
  Report Type: 
  Country: None (occurrence: None)
  Receive Date: 20120808
  Receipt Date: 20120726
  Transmission Date: 20120928
  Serious: No
  Sender: FDA-Public Use
  Company Number: US-ASTRAZENECA-2012SE48272

PATIENT
  Age: 69 Year
  Sex: Female

DRUGS (9)
  1. CEPHALEXIN [Concomitant]
     Indication: PROPHYLAXIS URINARY TRACT INFECTION
  2. FLONASE [Concomitant]
  3. PULMICORT FLEXHALER [Suspect]
     Indication: ASTHMA
     Route: 055
  4. XANAX [Concomitant]
  5. PEPCID [Concomitant]
  6. COZAAR [Concomitant]
  7. HYDRALAZINE HCL [Concomitant]
  8. CLARITIN [Concomitant]
  9. CARAFATE [Concomitant]

REACTIONS (2)
  - CHOKING [None]
  - CIRCUMSTANCE OR INFORMATION CAPABLE OF LEADING TO MEDICATION ERROR [None]
